FAERS Safety Report 9235926 (Version 1)
Quarter: 2013Q2

REPORT INFORMATION
  Report Type: Spontaneous
  Country: JP (occurrence: JP)
  Receive Date: 20130417
  Receipt Date: 20130417
  Transmission Date: 20140414
  Serious: Yes (Death)
  Sender: FDA-Public Use
  Company Number: JP-SANOFI-AVENTIS-2013SA038577

PATIENT
  Age: 70 Year
  Sex: Male

DRUGS (1)
  1. OXALIPLATIN [Suspect]
     Indication: PRODUCT USED FOR UNKNOWN INDICATION
     Route: 065

REACTIONS (4)
  - Respiratory failure [Fatal]
  - Disseminated intravascular coagulation [Fatal]
  - Pneumothorax [Fatal]
  - Interstitial lung disease [Fatal]
